FAERS Safety Report 10182640 (Version 1)
Quarter: 2014Q2

REPORT INFORMATION
  Report Type: Spontaneous
  Country: US (occurrence: None)
  Receive Date: 20140516
  Receipt Date: 20140516
  Transmission Date: 20141212
  Serious: Yes (Disabling, Other)
  Sender: FDA-Public Use
  Company Number: None

PATIENT
  Age: 56 Year
  Sex: Male
  Weight: 97.52 kg

DRUGS (4)
  1. AVELOX [Suspect]
     Indication: BACTERIAL INFECTION
     Route: 048
     Dates: start: 20131104, end: 20131108
  2. AVELOX [Suspect]
     Indication: ASTHMA
     Route: 048
     Dates: start: 20131104, end: 20131108
  3. AVELOX [Suspect]
     Indication: PYREXIA
     Route: 048
     Dates: start: 20131104, end: 20131108
  4. AVELOX [Suspect]
     Indication: DELIRIUM TREMENS
     Route: 048
     Dates: start: 20131104, end: 20131108

REACTIONS (4)
  - Tendon rupture [None]
  - Tendon pain [None]
  - Tendon pain [None]
  - Gait disturbance [None]
